FAERS Safety Report 9582018 (Version 5)
Quarter: 2013Q4

REPORT INFORMATION
  Report Type: Spontaneous
  Country: US (occurrence: US)
  Receive Date: 20131002
  Receipt Date: 20131231
  Transmission Date: 20140711
  Serious: Yes (Hospitalization, Other)
  Sender: FDA-Public Use
  Company Number: US-009507513-1203USA01179

PATIENT
  Sex: Female

DRUGS (6)
  1. FOSAMAX [Suspect]
     Indication: OSTEOPOROSIS
     Dosage: 70 MG, QW
     Route: 048
     Dates: start: 2004
  2. FOSAMAX [Suspect]
     Dosage: 10 MG (2 TABS) QW
     Route: 048
  3. ALENDRONATE SODIUM [Suspect]
     Dosage: 70 MG, UNK
     Route: 048
  4. TEGRETOL [Concomitant]
     Indication: COMPLEX PARTIAL SEIZURES
     Dosage: 200 MG, BID
     Route: 048
     Dates: start: 1992
  5. DIETHYLCARBAMAZINE [Concomitant]
     Indication: COMPLEX PARTIAL SEIZURES
     Dosage: 400 MG, BID
     Route: 048
  6. PRIMIDONE [Concomitant]
     Indication: COMPLEX PARTIAL SEIZURES
     Dosage: 250 MG, Q8H
     Route: 048
     Dates: start: 1992

REACTIONS (52)
  - Tibia fracture [Recovered/Resolved]
  - Fibula fracture [Recovered/Resolved]
  - Intramedullary rod insertion [Unknown]
  - Open reduction of fracture [Unknown]
  - Open reduction of fracture [Unknown]
  - Hip fracture [Unknown]
  - Gait disturbance [Unknown]
  - Intramedullary rod insertion [Unknown]
  - Fibula fracture [Unknown]
  - Eyelid ptosis [Unknown]
  - Bone graft [Unknown]
  - Pain in extremity [Unknown]
  - Fracture malunion [Unknown]
  - Low turnover osteopathy [Unknown]
  - Hypertension [Unknown]
  - Hyperlipidaemia [Unknown]
  - Osteoarthritis [Unknown]
  - Osteoarthritis [Unknown]
  - Balance disorder [Unknown]
  - Road traffic accident [Unknown]
  - Inappropriate schedule of drug administration [Unknown]
  - Fall [Unknown]
  - Hyponatraemia [Unknown]
  - Tremor [Unknown]
  - Uterine polyp [Unknown]
  - Uterine dilation and curettage [Unknown]
  - Poor personal hygiene [Unknown]
  - Actinic keratosis [Unknown]
  - Poor dental condition [Unknown]
  - Head injury [Unknown]
  - Joint dislocation [Unknown]
  - Cardiac murmur [Unknown]
  - Nervous system disorder [Unknown]
  - Hordeolum [Unknown]
  - Lower urinary tract symptoms [Unknown]
  - Vitamin D deficiency [Unknown]
  - Lymphoedema [Unknown]
  - Rectal prolapse [Unknown]
  - Fall [Unknown]
  - Eye injury [Unknown]
  - Synovial cyst [Unknown]
  - Coronary artery disease [Unknown]
  - Joint effusion [Unknown]
  - Synovial cyst [Unknown]
  - Depression [Unknown]
  - Impaired healing [Unknown]
  - Ulcer [Unknown]
  - Stem cell transplant [Unknown]
  - Constipation [Unknown]
  - Dizziness [Unknown]
  - Dizziness [Unknown]
  - Oedema peripheral [Not Recovered/Not Resolved]
